FAERS Safety Report 5553068-3 (Version None)
Quarter: 2007Q4

REPORT INFORMATION
  Report Type: 
  Country: None (occurrence: None)
  Receive Date: 20071205
  Receipt Date: 20071128
  Transmission Date: 20080405
  Serious: Yes (Other)
  Sender: FDA-Public Use
  Company Number: 2007336362

PATIENT
  Sex: Female

DRUGS (2)
  1. LUBRIDERM UNSCENTED ( NO ACTIVE INGREDIENT) [Suspect]
     Indication: DRY SKIN
     Dosage: ONCE (1 IN 1 D), TOPICAL
     Route: 061
     Dates: start: 20071128, end: 20071128
  2. TENORMIN [Suspect]
     Indication: BLOOD PRESSURE
     Dosage: 25 MG, DAILY
     Dates: start: 20071126

REACTIONS (1)
  - BURNS FIRST DEGREE [None]
